FAERS Safety Report 7414354 (Version 15)
Quarter: 2012Q4

REPORT INFORMATION
  Report Type: 
  Country: CA (occurrence: CA)
  Receive Date: 20100609
  Receipt Date: 20121104
  Transmission Date: 20130627
  Serious: Yes (Death, Hospitalization, Other)
  Sender: FDA-Public Use
  Company Number: PHHY2008CA22237

PATIENT
  Sex: Male

DRUGS (7)
  1. SANDOSTATIN LAR [Suspect]
     Indication: CARCINOID TUMOUR
     Dosage: 60 mg, every 4 weeks
     Route: 030
     Dates: start: 20031228
  2. SANDOSTATIN LAR [Suspect]
     Dosage: 20 mg, UNK
     Route: 030
  3. SANDOSTATIN LAR [Suspect]
     Dosage: 60 mg, BIW
     Route: 030
     Dates: end: 20091014
  4. SANDOSTATIN LAR [Suspect]
     Dosage: 40 mg, BIW
     Route: 030
  5. SANDOSTATIN LAR [Suspect]
     Dosage: 40 mg, QMO
     Route: 030
  6. SANDOSTATIN LAR [Suspect]
     Dosage: 40 mg, Every 4 weeks
     Route: 030
  7. SANDOSTATIN LAR [Suspect]
     Dosage: 40 mg, every 2 weeks
     Route: 030
     Dates: end: 20110209

REACTIONS (28)
  - Death [Fatal]
  - Small intestinal obstruction [Unknown]
  - Constipation [Unknown]
  - Vomiting [Recovering/Resolving]
  - Nausea [Unknown]
  - Hypophagia [Recovered/Resolved]
  - Dehydration [Recovered/Resolved]
  - Infrequent bowel movements [Unknown]
  - Abdominal adhesions [Unknown]
  - Blood pressure decreased [Unknown]
  - Staphylococcal infection [Unknown]
  - Hepatic mass [Not Recovered/Not Resolved]
  - Jaundice [Unknown]
  - Abdominal pain [Recovering/Resolving]
  - Flushing [Unknown]
  - Neck pain [Unknown]
  - Pain [Unknown]
  - Oedema peripheral [Unknown]
  - Back pain [Unknown]
  - Induration [Unknown]
  - Muscle spasms [Unknown]
  - Heart rate irregular [Unknown]
  - Diarrhoea [Unknown]
  - Injection site pain [Recovered/Resolved]
  - Fatigue [Not Recovered/Not Resolved]
  - Asthenia [Unknown]
  - Heart rate decreased [Unknown]
  - Flatulence [Unknown]
